FAERS Safety Report 11167626 (Version 1)
Quarter: 2015Q2

REPORT INFORMATION
  Report Type: Report from Study
  Country: DK (occurrence: DK)
  Receive Date: 20150605
  Receipt Date: 20150605
  Transmission Date: 20150821
  Serious: Yes (Death, Hospitalization)
  Sender: FDA-Public Use
  Company Number: DK-ROCHE-1573816

PATIENT
  Age: 69 Year
  Sex: Male

DRUGS (2)
  1. RITUXIMAB [Suspect]
     Active Substance: RITUXIMAB
     Indication: MANTLE CELL LYMPHOMA
     Route: 042
  2. DICILLIN [Concomitant]
     Active Substance: DICLOXACILLIN SODIUM
     Route: 048
     Dates: start: 20080625, end: 20080707

REACTIONS (13)
  - Chronic obstructive pulmonary disease [Fatal]
  - Dizziness [Recovered/Resolved]
  - Atrial fibrillation [Not Recovered/Not Resolved]
  - Vertigo [Recovered/Resolved]
  - Diarrhoea [Recovered/Resolved]
  - Pyrexia [Recovered/Resolved]
  - Chest pain [Recovered/Resolved]
  - Nausea [Recovered/Resolved]
  - Dehydration [Recovered/Resolved]
  - Vomiting [Recovered/Resolved]
  - Pneumonia [Fatal]
  - Phlebitis [Recovered/Resolved]
  - Cough [Recovered/Resolved]

NARRATIVE: CASE EVENT DATE: 20080307
